FAERS Safety Report 14313813 (Version 2)
Quarter: 2025Q2

REPORT INFORMATION
  Report Type: Spontaneous
  Country: FR (occurrence: FR)
  Receive Date: 20171221
  Receipt Date: 20250426
  Transmission Date: 20250716
  Serious: Yes (Death, Congenital Anomaly)
  Sender: AUROBINDO
  Company Number: FR-AUROBINDO-AUR-APL-2017-45701

PATIENT
  Age: 30 Year
  Sex: Female

DRUGS (1)
  1. PREDNISONE [Suspect]
     Active Substance: PREDNISONE
     Indication: Antinuclear antibody positive
     Route: 064

REACTIONS (1)
  - Congenital cytomegalovirus infection [Fatal]
